FAERS Safety Report 5500836-X (Version None)
Quarter: 2007Q4

REPORT INFORMATION
  Report Type: 
  Country: None (occurrence: None)
  Receive Date: 20071029
  Receipt Date: 20071024
  Transmission Date: 20080405
  Serious: Yes (Other)
  Sender: FDA-Public Use
  Company Number: B0492390A

PATIENT
  Age: 11 Year
  Sex: Male
  Weight: 38.6 kg

DRUGS (2)
  1. FLUTICASONE PROPIONATE [Suspect]
     Indication: ASTHMA
     Dosage: 250MCG PER DAY
     Route: 055
     Dates: start: 20031031, end: 20031105
  2. SALBUTAMOL [Concomitant]
     Indication: ASTHMA
     Route: 055
     Dates: start: 20030127

REACTIONS (2)
  - RASH MACULAR [None]
  - URTICARIA [None]
